FAERS Safety Report 5272906-5 (Version None)
Quarter: 2007Q1

REPORT INFORMATION
  Report Type: 
  Country: None (occurrence: None)
  Receive Date: 20070322
  Receipt Date: 20070309
  Transmission Date: 20070707
  Serious: Yes (Death, Hospitalization)
  Sender: FDA-Public Use
  Company Number: US-ROCHE-414008

PATIENT
  Sex: Male
  Weight: 36.3 kg

DRUGS (2)
  1. XELODA [Suspect]
     Dosage: FOR 14 DAYS. IT WAS REPORTED THAT IN DECEMBER 2004, WHILST IN A SURSING HOME THE PATINET RECIEVED C+
     Route: 048
  2. ASPIRIN [Suspect]
     Indication: DRUG USE FOR UNKNOWN INDICATION
     Dosage: IT WAS REPORTED THAT THE PATIENT WAS ^GIVEN AN ENORMOUS AMOUNT OF ASPIRIN WHICH KILLED HIM^.
     Route: 065

REACTIONS (6)
  - COLON CANCER METASTATIC [None]
  - COMA [None]
  - DRUG ADMINISTRATION ERROR [None]
  - HAEMORRHAGE [None]
  - OVERDOSE [None]
  - RASH MACULAR [None]
